FAERS Safety Report 4470834-6 (Version None)
Quarter: 2004Q4

REPORT INFORMATION
  Report Type: 
  Country: None (occurrence: None)
  Receive Date: 20041011
  Receipt Date: 20040817
  Transmission Date: 20050328
  Serious: Yes (Hospitalization)
  Sender: FDA-Public Use
  Company Number: CA-BRISTOL-MYERS SQUIBB COMPANY-12687067

PATIENT
  Age: 79 Year
  Sex: Male

DRUGS (11)
  1. GATIFLOXACIN [Suspect]
     Indication: PNEUMONIA
  2. GLYBURIDE [Suspect]
     Indication: DIABETES MELLITUS NON-INSULIN-DEPENDENT
     Route: 048
  3. METFORMIN HCL [Concomitant]
  4. AMLODIPINE [Concomitant]
  5. IRBESARTAN [Concomitant]
  6. TERAZOSIN HCL [Concomitant]
  7. ALLOPURINOL [Concomitant]
  8. OXAZEPAM [Concomitant]
  9. ASPIRIN [Concomitant]
  10. BICALUTAMIDE [Concomitant]
  11. GOSERELIN ACETATE [Concomitant]
     Route: 058

REACTIONS (2)
  - COMA [None]
  - HYPOGLYCAEMIA [None]
